FAERS Safety Report 12074490 (Version 2)
Quarter: 2016Q1

REPORT INFORMATION
  Report Type: Spontaneous
  Country: US (occurrence: US)
  Receive Date: 20160212
  Receipt Date: 20160325
  Transmission Date: 20160526
  Serious: Yes (Other)
  Sender: FDA-Public Use
  Company Number: US-TEVA-632700USA

PATIENT
  Age: 73 Year
  Sex: Male

DRUGS (3)
  1. AZILECT [Suspect]
     Active Substance: RASAGILINE MESYLATE
     Dates: start: 20130316, end: 20130815
  2. AZILECT [Suspect]
     Active Substance: RASAGILINE MESYLATE
     Indication: PARKINSON^S DISEASE
     Route: 065
  3. AZILECT [Suspect]
     Active Substance: RASAGILINE MESYLATE
     Route: 065
     Dates: start: 20160108, end: 20160130

REACTIONS (9)
  - Blood pressure decreased [Unknown]
  - Fall [Unknown]
  - Tooth fracture [Unknown]
  - Confusional state [Unknown]
  - Rhinorrhoea [Unknown]
  - Heart rate decreased [Unknown]
  - Injury [Unknown]
  - Lip injury [Unknown]
  - Fatigue [Unknown]

NARRATIVE: CASE EVENT DATE: 20160107
